FAERS Safety Report 14337183 (Version 3)
Quarter: 2018Q2

REPORT INFORMATION
  Report Type: Spontaneous
  Country: AT (occurrence: AT)
  Receive Date: 20171229
  Receipt Date: 20180613
  Transmission Date: 20180711
  Serious: Yes (Hospitalization, Other)
  Sender: FDA-Public Use
  Company Number: AT-ASTRAZENECA-2017SF01127

PATIENT
  Age: 67 Year
  Sex: Female

DRUGS (40)
  1. SEROQUEL [Suspect]
     Active Substance: QUETIAPINE FUMARATE
     Dosage: 400.0MG UNKNOWN
     Route: 048
     Dates: start: 20170614, end: 20170616
  2. PRAXITEN [Concomitant]
     Active Substance: OXAZEPAM
     Dosage: 100.0MG UNKNOWN
     Dates: start: 20170621, end: 20170626
  3. PRAXITEN [Concomitant]
     Active Substance: OXAZEPAM
     Dosage: 75.0MG UNKNOWN
     Dates: start: 20170705, end: 20170706
  4. TEMESTA (LORAZEPAM) [Concomitant]
     Active Substance: LORAZEPAM
     Dosage: 3.0MG UNKNOWN
     Dates: start: 20170707, end: 20170719
  5. RISPERDAL [Concomitant]
     Active Substance: RISPERIDONE
     Dosage: 1.0MG UNKNOWN
     Dates: start: 20170706, end: 20170706
  6. PANTOLOC [Concomitant]
     Active Substance: PANTOPRAZOLE SODIUM
     Dosage: 40.0MG UNKNOWN
     Dates: start: 20170614, end: 20170707
  7. LOVENOX [Concomitant]
     Active Substance: ENOXAPARIN SODIUM
     Dosage: 40.0MG UNKNOWN
     Dates: start: 20170621, end: 20170729
  8. SEROQUEL [Suspect]
     Active Substance: QUETIAPINE FUMARATE
     Dosage: 250.0MG UNKNOWN
     Route: 048
     Dates: start: 20170619, end: 20170619
  9. LEPONEX [Suspect]
     Active Substance: CLOZAPINE
     Dosage: 400.0MG UNKNOWN
     Route: 048
     Dates: start: 20170614, end: 20170619
  10. AKINETON [Suspect]
     Active Substance: BIPERIDEN HYDROCHLORIDE
     Dosage: 4.0MG UNKNOWN
     Route: 065
     Dates: start: 20170614, end: 20170622
  11. AKINETON [Suspect]
     Active Substance: BIPERIDEN HYDROCHLORIDE
     Dosage: 4.0MG UNKNOWN
     Route: 065
     Dates: start: 20170703, end: 20170707
  12. RISPERDAL [Concomitant]
     Active Substance: RISPERIDONE
     Dosage: 2.0MG UNKNOWN
     Dates: start: 20170703, end: 20170704
  13. GLUCOPHAGE [Concomitant]
     Active Substance: METFORMIN HYDROCHLORIDE
     Dosage: 500.0MG UNKNOWN
     Dates: start: 20170614, end: 20170703
  14. LAEVOLAC [Concomitant]
     Active Substance: LACTULOSE
     Dosage: 2 EL
     Dates: start: 20170723
  15. SEROQUEL [Suspect]
     Active Substance: QUETIAPINE FUMARATE
     Dosage: 400.0MG UNKNOWN
     Route: 048
     Dates: start: 20170525, end: 20170616
  16. ABILIFY [Suspect]
     Active Substance: ARIPIPRAZOLE
     Indication: PRODUCT USED FOR UNKNOWN INDICATION
     Dosage: 7.5MG UNKNOWN
     Route: 048
     Dates: start: 20160704
  17. ABILIFY [Suspect]
     Active Substance: ARIPIPRAZOLE
     Indication: PRODUCT USED FOR UNKNOWN INDICATION
     Dosage: 10.0MG UNKNOWN
     Route: 048
     Dates: start: 20170727
  18. PRAXITEN [Concomitant]
     Active Substance: OXAZEPAM
     Dosage: 97.5MG UNKNOWN
     Dates: start: 20170617, end: 20170617
  19. PRAXITEN [Concomitant]
     Active Substance: OXAZEPAM
     Dosage: 150.0MG UNKNOWN
     Dates: start: 20170701, end: 20170704
  20. TEMESTA (LORAZEPAM) [Concomitant]
     Active Substance: LORAZEPAM
     Dosage: 2.5MG UNKNOWN
     Dates: start: 20170720
  21. RISPERDAL [Concomitant]
     Active Substance: RISPERIDONE
     Dosage: 4.0MG UNKNOWN
     Dates: start: 20170701, end: 20170702
  22. AMANTADINE SULFATE [Concomitant]
     Active Substance: AMANTADINE SULFATE
     Dosage: 200.0MG UNKNOWN
     Dates: start: 20170708, end: 20170719
  23. LEPONEX [Suspect]
     Active Substance: CLOZAPINE
     Dosage: 400.0MG UNKNOWN
     Route: 048
     Dates: start: 20170526, end: 20170619
  24. PRAXITEN [Concomitant]
     Active Substance: OXAZEPAM
     Dosage: 130.0MG UNKNOWN
     Dates: start: 20170614, end: 20170616
  25. PRAXITEN [Concomitant]
     Active Substance: OXAZEPAM
     Dosage: 40.0MG UNKNOWN
     Dates: start: 20170619, end: 20170620
  26. PRAXITEN [Concomitant]
     Active Substance: OXAZEPAM
     Dosage: 90.0MG UNKNOWN
     Dates: start: 20170618, end: 20170618
  27. RISPERDAL [Concomitant]
     Active Substance: RISPERIDONE
     Dosage: 3.0MG UNKNOWN
     Dates: start: 20170630, end: 20170630
  28. SELEXID [Concomitant]
     Dosage: 400.0MG UNKNOWN
     Dates: start: 20170627, end: 20170630
  29. NACL [Concomitant]
     Active Substance: SODIUM CHLORIDE
     Dosage: 2.0DF UNKNOWN
     Dates: start: 20170614, end: 20170620
  30. SERTRALINE [Suspect]
     Active Substance: SERTRALINE HYDROCHLORIDE
     Dosage: 100.0MG UNKNOWN
     Route: 065
     Dates: start: 20170614, end: 20170619
  31. LEPONEX [Suspect]
     Active Substance: CLOZAPINE
     Dosage: 350.0MG UNKNOWN
     Route: 048
     Dates: start: 20170620, end: 20170620
  32. ABILIFY [Suspect]
     Active Substance: ARIPIPRAZOLE
     Indication: PRODUCT USED FOR UNKNOWN INDICATION
     Dosage: 5.0MG UNKNOWN
     Route: 048
     Dates: start: 20170725, end: 20170726
  33. RISPERDAL [Concomitant]
     Active Substance: RISPERIDONE
     Dosage: 1.0MG UNKNOWN
     Dates: start: 20170626, end: 20170629
  34. RISPERDAL [Concomitant]
     Active Substance: RISPERIDONE
     Dosage: 1.5MG UNKNOWN
     Dates: start: 20170705, end: 20170705
  35. MOLAXOLE [Concomitant]
     Active Substance: POLYETHYLENE GLYCOL 3350\POTASSIUM CHLORIDE\SODIUM BICARBONATE\SODIUM CHLORIDE
     Dosage: 1.0DF UNKNOWN
     Dates: start: 20170614, end: 20170707
  36. ABILIFY [Suspect]
     Active Substance: ARIPIPRAZOLE
     Indication: PRODUCT USED FOR UNKNOWN INDICATION
     Dosage: 15.0MG UNKNOWN
     Route: 048
     Dates: start: 2016, end: 20161122
  37. PRAXITEN [Concomitant]
     Active Substance: OXAZEPAM
     Dosage: 75.0MG UNKNOWN
     Dates: start: 20170705, end: 20170706
  38. SEROQUEL [Suspect]
     Active Substance: QUETIAPINE FUMARATE
     Dosage: 300.0MG UNKNOWN
     Route: 048
     Dates: start: 20170617, end: 20170618
  39. SEROQUEL [Suspect]
     Active Substance: QUETIAPINE FUMARATE
     Dosage: 175.0MG UNKNOWN
     Route: 048
     Dates: start: 20170620, end: 20170620
  40. PRAXITEN [Concomitant]
     Active Substance: OXAZEPAM
     Dosage: 50.0MG UNKNOWN
     Dates: start: 20170626, end: 20170630

REACTIONS (5)
  - Extrapyramidal disorder [Recovered/Resolved]
  - Wrong technique in product usage process [Unknown]
  - Underdose [Unknown]
  - Neuroleptic malignant syndrome [Recovered/Resolved]
  - Delirium [Recovered/Resolved]

NARRATIVE: CASE EVENT DATE: 20170619
